FAERS Safety Report 18366129 (Version 1)
Quarter: 2020Q4

REPORT INFORMATION
  Report Type: Spontaneous
  Country: US (occurrence: US)
  Receive Date: 20201009
  Receipt Date: 20201009
  Transmission Date: 20210114
  Serious: No
  Sender: FDA-Public Use
  Company Number: US-009507513-2010USA002551

PATIENT
  Sex: Male

DRUGS (2)
  1. NEOSTIGMINE METHYLSULFATE. [Concomitant]
     Active Substance: NEOSTIGMINE METHYLSULFATE
     Dosage: 5 MILLIGRAM
     Dates: start: 20201002
  2. BRIDION [Suspect]
     Active Substance: SUGAMMADEX
     Dosage: 1 MG/KG, UNK
     Dates: start: 20201002

REACTIONS (2)
  - Incorrect dose administered [Unknown]
  - No adverse event [Unknown]

NARRATIVE: CASE EVENT DATE: 20201002
